FAERS Safety Report 22105776 (Version 3)
Quarter: 2024Q1

REPORT INFORMATION
  Report Type: Spontaneous
  Country: US (occurrence: US)
  Receive Date: 20230317
  Receipt Date: 20240327
  Transmission Date: 20240410
  Serious: No
  Sender: FDA-Public Use
  Company Number: US-SA-SAC20230314000313

PATIENT
  Age: 59 Year
  Sex: Female

DRUGS (1)
  1. DUPIXENT [Suspect]
     Active Substance: DUPILUMAB
     Indication: Asthma
     Dosage: 300 MG, QOW
     Route: 058
     Dates: start: 202302

REACTIONS (8)
  - Impaired quality of life [Unknown]
  - Respiratory tract congestion [Unknown]
  - Asthma [Unknown]
  - Product dose omission issue [Unknown]
  - Asthma [Unknown]
  - Arthralgia [Unknown]
  - Product storage error [Unknown]
  - Drug ineffective [Unknown]

NARRATIVE: CASE EVENT DATE: 20230101
